FAERS Safety Report 12519201 (Version 1)
Quarter: 2016Q2

REPORT INFORMATION
  Report Type: Report from Study
  Country: US (occurrence: US)
  Receive Date: 20160630
  Receipt Date: 20160630
  Transmission Date: 20160815
  Serious: Yes (Hospitalization, Other)
  Sender: FDA-Public Use
  Company Number: US-ACTELION-A-US2016-138340

PATIENT
  Age: 65 Year
  Sex: Female

DRUGS (12)
  1. CALCIUM [Concomitant]
     Active Substance: CALCIUM
     Dosage: 600 MG, 2 TABLETS, BID
     Dates: start: 201507
  2. ESOMEPRAZOLE [Concomitant]
     Active Substance: ESOMEPRAZOLE
     Dosage: 40 MG, QD
  3. AMLODIPINE [Concomitant]
     Active Substance: AMLODIPINE BESYLATE
     Dosage: 10 MG, QD
     Dates: start: 2000
  4. ARAVA [Concomitant]
     Active Substance: LEFLUNOMIDE
     Dosage: 10 MG, QD
     Dates: start: 2000
  5. OXYCODONE [Concomitant]
     Active Substance: OXYCODONE
     Dosage: 10/325 MG, 1-3 QD
     Dates: start: 201506
  6. SILDENAFIL. [Concomitant]
     Active Substance: SILDENAFIL
     Dosage: 5 MG, QD
     Dates: start: 2000
  7. TRACLEER [Suspect]
     Active Substance: BOSENTAN
     Indication: PULMONARY ARTERIAL HYPERTENSION
     Dosage: UNK
     Route: 048
     Dates: start: 2000, end: 2013
  8. ALPRAZOLAM. [Suspect]
     Active Substance: ALPRAZOLAM
     Indication: PRODUCT USED FOR UNKNOWN INDICATION
     Dosage: 0.5 MG, UNK
     Route: 065
     Dates: start: 2016
  9. OPSUMIT [Suspect]
     Active Substance: MACITENTAN
     Indication: PULMONARY ARTERIAL HYPERTENSION
     Dosage: 10 MG, UNK
     Route: 048
     Dates: start: 2013
  10. LEVOTHYROXINE. [Concomitant]
     Active Substance: LEVOTHYROXINE
     Dosage: 15 MG, QD
     Dates: start: 1996
  11. IRON [Concomitant]
     Active Substance: IRON
     Dosage: UNK, QD
     Dates: start: 2014
  12. LORAZEPAM. [Suspect]
     Active Substance: LORAZEPAM
     Indication: PRODUCT USED FOR UNKNOWN INDICATION
     Dosage: 1 MG, UNK
     Route: 065
     Dates: start: 2016

REACTIONS (20)
  - Upper respiratory tract infection [Unknown]
  - Platelet disorder [Recovered/Resolved]
  - Anxiety [Not Recovered/Not Resolved]
  - Weight increased [Recovered/Resolved]
  - Blood pressure increased [Recovered/Resolved]
  - Platelet count decreased [Recovered/Resolved]
  - Transfusion [Unknown]
  - Malaise [Unknown]
  - Bronchitis [Unknown]
  - Rash macular [Recovered/Resolved]
  - Fatigue [Recovered/Resolved]
  - Sleep apnoea syndrome [Not Recovered/Not Resolved]
  - Insomnia [Not Recovered/Not Resolved]
  - Spinal fracture [Recovering/Resolving]
  - Thrombosis [Unknown]
  - Nasopharyngitis [Recovered/Resolved]
  - Peripheral swelling [Unknown]
  - Rash [Recovered/Resolved]
  - Back pain [Recovering/Resolving]
  - Multiple allergies [Unknown]

NARRATIVE: CASE EVENT DATE: 2000
